FAERS Safety Report 12633141 (Version 2)
Quarter: 2016Q3

REPORT INFORMATION
  Report Type: Spontaneous
  Country: US (occurrence: US)
  Receive Date: 20160808
  Receipt Date: 20160808
  Transmission Date: 20161109
  Serious: No
  Sender: FDA-Public Use
  Company Number: US-BEH-2016058558

PATIENT
  Age: 82 Year
  Sex: Male
  Weight: 101 kg

DRUGS (16)
  1. PROVENTIL HFA [Concomitant]
     Active Substance: ALBUTEROL SULFATE
     Dosage: HFA AER AD
  2. BENADRYL ALLERGY [Concomitant]
     Active Substance: DIPHENHYDRAMINE HYDROCHLORIDE
     Dosage: ULTRATB
  3. EPI-PEN AUTOINJECTOR [Concomitant]
  4. ACETAMINOPHEN. [Concomitant]
     Active Substance: ACETAMINOPHEN
  5. DIPHENHYDRAMINE. [Concomitant]
     Active Substance: DIPHENHYDRAMINE
  6. L-M-X [Concomitant]
  7. VALIUM [Concomitant]
     Active Substance: DIAZEPAM
  8. ADVAIR DISKUS [Concomitant]
     Active Substance: FLUTICASONE PROPIONATE\SALMETEROL XINAFOATE
     Dosage: 250-50 MCG BLST W/DEV
  9. SIMVASTATIN. [Concomitant]
     Active Substance: SIMVASTATIN
  10. TYLENOL ARTHRITIS ER [Concomitant]
     Dosage: TB
  11. OCEAN SALINE NASAL SPRAY [Concomitant]
     Active Substance: SODIUM CHLORIDE
     Dosage: SPRAY
  12. VIAGRA [Concomitant]
     Active Substance: SILDENAFIL CITRATE
  13. GEMFIBROZIL. [Concomitant]
     Active Substance: GEMFIBROZIL
  14. HIZENTRA [Suspect]
     Active Substance: HUMAN IMMUNOGLOBULIN G
     Indication: IMMUNODEFICIENCY COMMON VARIABLE
     Route: 058
     Dates: start: 20120326
  15. DICYCLOMINE HCL [Concomitant]
     Active Substance: DICYCLOMINE HYDROCHLORIDE
  16. MICARDIS [Concomitant]
     Active Substance: TELMISARTAN

REACTIONS (1)
  - Sinusitis [Unknown]

NARRATIVE: CASE EVENT DATE: 20151129
